FAERS Safety Report 12451775 (Version 6)
Quarter: 2016Q3

REPORT INFORMATION
  Report Type: Report from Study
  Country: GB (occurrence: GB)
  Receive Date: 20160609
  Receipt Date: 20160824
  Transmission Date: 20161109
  Serious: Yes (Life-Threatening, Hospitalization, Other)
  Sender: FDA-Public Use
  Company Number: GB-EISAI MEDICAL RESEARCH-EC-2016-017525

PATIENT
  Age: 69 Year
  Sex: Male
  Weight: 85 kg

DRUGS (9)
  1. LENVATINIB [Suspect]
     Active Substance: LENVATINIB
     Route: 048
     Dates: start: 20160711
  2. ATORVASTATIN [Concomitant]
     Active Substance: ATORVASTATIN
  3. PERINDOPRIL [Suspect]
     Active Substance: PERINDOPRIL
     Indication: PROPHYLAXIS
     Route: 048
     Dates: end: 20160705
  4. IBUPROFEN. [Concomitant]
     Active Substance: IBUPROFEN
  5. QUININE SULPHATE [Concomitant]
     Active Substance: QUININE SULFATE
  6. METFORMIN [Concomitant]
     Active Substance: METFORMIN HYDROCHLORIDE
  7. LENVATINIB [Suspect]
     Active Substance: LENVATINIB
     Indication: HEPATOCELLULAR CARCINOMA
     Route: 048
     Dates: start: 20150707, end: 20160606
  8. THYROXINE [Concomitant]
     Active Substance: LEVOTHYROXINE
  9. ZOPLICONE [Concomitant]
     Active Substance: ZOPICLONE

REACTIONS (4)
  - Hypomagnesaemia [Recovered/Resolved]
  - Haematuria [Recovered/Resolved]
  - Hyperkalaemia [Recovered/Resolved]
  - Hypocalcaemia [Recovered/Resolved]

NARRATIVE: CASE EVENT DATE: 20160604
